FAERS Safety Report 4601698-5 (Version None)
Quarter: 2005Q1

REPORT INFORMATION
  Report Type: 
  Country: None (occurrence: None)
  Receive Date: 20050131
  Receipt Date: 20041102
  Transmission Date: 20050727
  Serious: Yes (Other)
  Sender: FDA-Public Use
  Company Number: 200416628US

PATIENT
  Age: 35 Year
  Sex: Male

DRUGS (1)
  1. KETEK [Suspect]
     Indication: SINUSITIS
     Dosage: 800 MG QD

REACTIONS (3)
  - ACCOMMODATION DISORDER [None]
  - DIZZINESS [None]
  - FEELING ABNORMAL [None]
